FAERS Safety Report 4519428-4 (Version None)
Quarter: 2004Q4

REPORT INFORMATION
  Report Type: 
  Country: None (occurrence: None)
  Receive Date: 20041202
  Receipt Date: 20041119
  Transmission Date: 20050328
  Serious: Yes (Hospitalization)
  Sender: FDA-Public Use
  Company Number: 2004098188

PATIENT
  Age: 46 Year
  Sex: Female

DRUGS (5)
  1. CYCLOPHOSPHAMIDE [Suspect]
     Indication: BREAST CANCER
     Dosage: 900 MG (1 IN 3 WK), INTRAVENOUS
     Route: 042
     Dates: start: 20040715
  2. EPIRUBICIN HYDROCHLORIDE           (EPIRUBICIN HYDROCHLORIDE) [Suspect]
     Indication: BREAST CANCER
     Dosage: (1 IN 3 WK), INTRAVENOUS
     Route: 042
     Dates: start: 20040715
  3. FLUOROURACIL [Suspect]
     Indication: BREAST CANCER
     Dosage: 900 MG (1 IN 4 WK), INTRAVENOUS
     Route: 042
     Dates: start: 20040715
  4. PEGFILGRASTIM (PEGFILGRASTIM) [Suspect]
     Indication: BREAST CANCER
     Dates: start: 20040701
  5. FILGRASTIM (FILGRASTIM) [Suspect]
     Indication: BREAST CANCER
     Dates: start: 20040801

REACTIONS (4)
  - NEUTROPENIA [None]
  - PYREXIA [None]
  - STOMATITIS [None]
  - WHITE BLOOD CELL COUNT DECREASED [None]
